FAERS Safety Report 18645128 (Version 2)
Quarter: 2020Q4

REPORT INFORMATION
  Report Type: Spontaneous
  Country: IL (occurrence: IL)
  Receive Date: 20201221
  Receipt Date: 20201230
  Transmission Date: 20210114
  Serious: Yes (Other)
  Sender: FDA-Public Use
  Company Number: IL-BAYER-2020-282760

PATIENT
  Sex: Female

DRUGS (1)
  1. MIRENA [Suspect]
     Active Substance: LEVONORGESTREL
     Dosage: 20 ?G PER DAY CONTINUOUSLY
     Route: 015
     Dates: start: 2013, end: 2020

REACTIONS (4)
  - Product prescribing issue [None]
  - Complication of device removal [Recovered/Resolved]
  - Device breakage [None]
  - Intentional device use issue [Recovered/Resolved]

NARRATIVE: CASE EVENT DATE: 2018
